FAERS Safety Report 5087130-9 (Version None)
Quarter: 2006Q3

REPORT INFORMATION
  Report Type: 
  Country: None (occurrence: None)
  Receive Date: 20060821
  Receipt Date: 20060808
  Transmission Date: 20061208
  Serious: Yes (Hospitalization, Other)
  Sender: FDA-Public Use
  Company Number: 2006045202

PATIENT
  Age: 56 Year
  Sex: Male
  Weight: 48 kg

DRUGS (3)
  1. SUTENT [Suspect]
     Indication: METASTATIC RENAL CELL CARCINOMA
     Dosage: 50 MG (50 MG, 1 IN 1 D) ORAL
     Route: 048
     Dates: start: 20060214
  2. DEXAMETHASONE [Concomitant]
  3. DEXAMETHASONE [Concomitant]

REACTIONS (10)
  - ASCITES [None]
  - BLOOD CULTURE POSITIVE [None]
  - DIARRHOEA [None]
  - ESCHERICHIA INFECTION [None]
  - FEBRILE NEUTROPENIA [None]
  - HYPOALBUMINAEMIA [None]
  - HYPOKALAEMIA [None]
  - KLEBSIELLA INFECTION [None]
  - SEPSIS [None]
  - THROMBOCYTOPENIA [None]
